FAERS Safety Report 23687650 (Version 2)
Quarter: 2024Q2

REPORT INFORMATION
  Report Type: Report from Study
  Country: US (occurrence: US)
  Receive Date: 20240329
  Receipt Date: 20240425
  Transmission Date: 20240716
  Serious: Yes (Death)
  Sender: FDA-Public Use
  Company Number: US-TAIHOP-2024-003061

PATIENT
  Age: 68 Year
  Sex: Male

DRUGS (1)
  1. LONSURF [Suspect]
     Active Substance: TIPIRACIL HYDROCHLORIDE\TRIFLURIDINE
     Indication: Colon cancer
     Dosage: CYCLE 1; FORM STRENGTH 15MG AND 20MG
     Route: 048
     Dates: start: 20240308

REACTIONS (1)
  - Death [Fatal]

NARRATIVE: CASE EVENT DATE: 20240325
